FAERS Safety Report 14431059 (Version 1)
Quarter: 2018Q1

REPORT INFORMATION
  Report Type: Spontaneous
  Country: US (occurrence: US)
  Receive Date: 20180124
  Receipt Date: 20180124
  Transmission Date: 20180509
  Serious: Yes (Other)
  Sender: FDA-Public Use
  Company Number: US-INCYTE CORPORATION-2018IN000524

PATIENT

DRUGS (1)
  1. JAKAFI [Suspect]
     Active Substance: RUXOLITINIB
     Indication: MYELOFIBROSIS
     Dosage: 15 MG, BID
     Route: 048

REACTIONS (7)
  - Diabetes mellitus [Unknown]
  - Dyspnoea [Unknown]
  - Lung disorder [Unknown]
  - Hypertension [Unknown]
  - Pain [Unknown]
  - Fatigue [Unknown]
  - Injury [Unknown]
